FAERS Safety Report 13257555 (Version 4)
Quarter: 2017Q4

REPORT INFORMATION
  Report Type: Spontaneous
  Country: US (occurrence: US)
  Receive Date: 20170221
  Receipt Date: 20171027
  Transmission Date: 20180320
  Serious: Yes (Life-Threatening)
  Sender: FDA-Public Use
  Company Number: US-PFIZER INC-2017073573

PATIENT
  Age: 62 Year
  Sex: Female

DRUGS (1)
  1. SULFAMETHOXAZOLE/TRIMETHOPRIM [Suspect]
     Active Substance: SULFAMETHOXAZOLE\TRIMETHOPRIM
     Indication: COLITIS ULCERATIVE
     Dosage: DOUBLE-STRENGTH TRIMETHOPRIM/SULFAMETHOXAZOLE, 2X/DAY

REACTIONS (2)
  - Lupus-like syndrome [Recovered/Resolved]
  - Serositis [Recovered/Resolved]
